FAERS Safety Report 25621243 (Version 1)
Quarter: 2025Q3

REPORT INFORMATION
  Report Type: Spontaneous
  Country: EU (occurrence: EU)
  Receive Date: 20250730
  Receipt Date: 20250730
  Transmission Date: 20251020
  Serious: Yes (Hospitalization)
  Sender: NOVARTIS
  Company Number: None

PATIENT
  Age: 53 Year
  Sex: Female
  Weight: 67 kg

DRUGS (2)
  1. COSENTYX [Suspect]
     Active Substance: SECUKINUMAB
     Indication: Ankylosing spondylitis
     Dosage: 150 MG, BIW
     Route: 058
     Dates: start: 20200101, end: 20250401
  2. METHOTREXATE [Suspect]
     Active Substance: METHOTREXATE
     Indication: Ankylosing spondylitis
     Dosage: 15 MG, QW (15 MG/SEMAINE),  INJECTABLE SOLUTION IN PRE-FILLED PEN
     Route: 058
     Dates: start: 20170809, end: 20250707

REACTIONS (1)
  - Non-small cell lung cancer stage IV [Not Recovered/Not Resolved]

NARRATIVE: CASE EVENT DATE: 20250625
